FAERS Safety Report 6318001-5 (Version None)
Quarter: 2009Q3

REPORT INFORMATION
  Report Type: 
  Country: None (occurrence: None)
  Receive Date: 20090821
  Receipt Date: 20090810
  Transmission Date: 20100115
  Serious: Yes (Hospitalization, Other)
  Sender: FDA-Public Use
  Company Number: NO-PFIZER INC-2009252270

PATIENT
  Age: 40 Year

DRUGS (7)
  1. DIFLUCAN [Suspect]
     Indication: FUNGAL INFECTION
     Dosage: UNK
     Route: 048
     Dates: start: 20081201, end: 20090201
  2. SEROQUEL [Interacting]
     Indication: NERVOUSNESS
     Route: 048
  3. LEVONORGESTREL [Interacting]
     Route: 015
     Dates: start: 20080801
  4. LIVOSTIN [Concomitant]
     Dosage: WHEN NEEDED
     Route: 047
  5. AERIUS [Concomitant]
     Route: 048
  6. SYMBICORT [Concomitant]
     Route: 055
  7. ALBYL-E [Concomitant]
     Indication: THROMBOSIS PROPHYLAXIS
     Route: 048

REACTIONS (1)
  - DELUSIONAL DISORDER, PERSECUTORY TYPE [None]
